FAERS Safety Report 7967258-3 (Version None)
Quarter: 2011Q4

REPORT INFORMATION
  Report Type: 
  Country: None (occurrence: None)
  Receive Date: 20111206
  Receipt Date: 20111128
  Transmission Date: 20120403
  Serious: Yes (Other)
  Sender: FDA-Public Use
  Company Number: AUR-APL-2011-05006

PATIENT
  Age: 61 Year
  Sex: Male
  Weight: 105.2 kg

DRUGS (9)
  1. ASPIRIN [Concomitant]
  2. CITALOPRAM HYDROBROMIDE [Suspect]
     Indication: PRODUCT USED FOR UNKNOWN INDICATION
     Dosage: (10 MG,1 D),ORAL
     Route: 048
  3. EZETIMIBE [Concomitant]
  4. ATORVASTATIN CALCIUM [Suspect]
     Indication: ATRIAL FIBRILLATION
     Dosage: (40 MG,1 D),ORAL
     Route: 048
  5. DILTIAZEM HCL [Suspect]
     Indication: ATRIAL FIBRILLATION
     Dosage: (240 MG,1 D),ORAL
     Route: 048
  6. SIMVASTATIN [Suspect]
     Indication: PRODUCT USED FOR UNKNOWN INDICATION
     Dosage: (80 MG,1 D)
  7. ATENOLOL [Concomitant]
  8. TESTOSTERONE [Concomitant]
  9. PANTOPRAZOLE [Concomitant]

REACTIONS (17)
  - BLOOD GLUCOSE INCREASED [None]
  - HYPERVENTILATION [None]
  - PERIODIC LIMB MOVEMENT DISORDER [None]
  - DYSKINESIA [None]
  - CONVULSION [None]
  - MYOCLONUS [None]
  - BALANCE DISORDER [None]
  - RESPIRATORY DISORDER [None]
  - SENSORY DISTURBANCE [None]
  - STEREOTYPY [None]
  - EXAGGERATED STARTLE RESPONSE [None]
  - MUSCLE TWITCHING [None]
  - DRUG INTERACTION [None]
  - IRON BINDING CAPACITY TOTAL INCREASED [None]
  - TRANSFERRIN SATURATION DECREASED [None]
  - SERUM FERRITIN DECREASED [None]
  - SLEEP APNOEA SYNDROME [None]
